FAERS Safety Report 16543374 (Version 2)
Quarter: 2019Q3

REPORT INFORMATION
  Report Type: Spontaneous
  Country: GB (occurrence: GB)
  Receive Date: 20190709
  Receipt Date: 20190718
  Transmission Date: 20191004
  Serious: Yes (Hospitalization)
  Sender: FDA-Public Use
  Company Number: GB-DRREDDYS-GER/UKI/19/0111416

PATIENT
  Age: 54 Year
  Sex: Female

DRUGS (11)
  1. CITALOPRAM [Concomitant]
     Active Substance: CITALOPRAM HYDROBROMIDE
     Indication: DEPRESSION
     Dates: start: 20170726, end: 20190621
  2. FEXOFENADINE HYDROCHLORIDE 180 [Suspect]
     Active Substance: FEXOFENADINE HYDROCHLORIDE
     Indication: SEASONAL ALLERGY
     Route: 048
     Dates: start: 20110905, end: 20190524
  3. SERETIDE [Concomitant]
     Active Substance: FLUTICASONE PROPIONATE\SALMETEROL XINAFOATE
     Indication: ASTHMA
  4. LANSOPRAZOLE 30MG [Concomitant]
     Active Substance: LANSOPRAZOLE
     Indication: OESOPHAGITIS
  5. VENTOLIN 100 MICROGRAMS [Concomitant]
     Indication: ASTHMA
     Dosage: 100 MICROGRAMS/DOSE
     Dates: start: 20110920, end: 20190524
  6. EVOREL SEQUI PATCHES [Concomitant]
     Indication: HORMONE REPLACEMENT THERAPY
     Dates: start: 20170323, end: 20171030
  7. CO-CODAMOL 30 MG/500 MG [Concomitant]
     Indication: OESOPHAGEAL DILATATION
     Dosage: 30MG / 500MG CAPSULES;
     Dates: start: 20151231, end: 20190621
  8. LANSOPRAZOLE 30MG [Concomitant]
     Active Substance: LANSOPRAZOLE
     Indication: GASTROOESOPHAGEAL REFLUX DISEASE
     Dates: start: 20160523, end: 20190621
  9. LAMOTRIGINE 25 MG [Concomitant]
     Active Substance: LAMOTRIGINE
     Indication: EPILEPSY
     Dates: start: 20150626, end: 20190621
  10. SERETIDE [Concomitant]
     Active Substance: FLUTICASONE PROPIONATE\SALMETEROL XINAFOATE
     Indication: VIRAL UPPER RESPIRATORY TRACT INFECTION
     Dosage: SERETIDE 250 EVOHALER
     Dates: start: 20170601, end: 20190621
  11. LORATADINE 10 MG [Concomitant]
     Active Substance: LORATADINE
     Indication: PRODUCT USED FOR UNKNOWN INDICATION
     Dates: start: 20190628, end: 20190628

REACTIONS (8)
  - Feeding disorder [Unknown]
  - Injury [Unknown]
  - Throat irritation [Unknown]
  - Product size issue [Unknown]
  - Dysphagia [Unknown]
  - Ill-defined disorder [Unknown]
  - Foreign body in respiratory tract [Recovered/Resolved]
  - Oesophageal mucosal tear [Unknown]

NARRATIVE: CASE EVENT DATE: 201906
